FAERS Safety Report 5560675-0 (Version None)
Quarter: 2007Q4

REPORT INFORMATION
  Report Type: 
  Country: None (occurrence: None)
  Receive Date: 20071215
  Receipt Date: 20071113
  Transmission Date: 20080405
  Serious: No
  Sender: FDA-Public Use
  Company Number: US-ABBOTT-07P-163-0425410-00

PATIENT
  Sex: Male
  Weight: 127.3 kg

DRUGS (6)
  1. HUMIRA [Suspect]
     Indication: CROHN'S DISEASE
     Route: 058
     Dates: start: 20061201
  2. HUMIRA [Suspect]
     Route: 058
  3. HUMIRA [Suspect]
     Route: 058
  4. HEART MEDICINE [Concomitant]
     Indication: CARDIAC DISORDER
     Route: 048
  5. CROHN'S MEDICINE [Concomitant]
     Indication: CROHN'S DISEASE
     Route: 048
  6. BACK MEDICINE [Concomitant]
     Indication: BACK DISORDER

REACTIONS (4)
  - EYE SWELLING [None]
  - INJECTION SITE NODULE [None]
  - INJECTION SITE PRURITUS [None]
  - INJECTION SITE SWELLING [None]
